FAERS Safety Report 8831353 (Version 1)
Quarter: 2012Q4

REPORT INFORMATION
  Report Type: 
  Country: US (occurrence: US)
  Receive Date: 20121009
  Receipt Date: 20121009
  Transmission Date: 20130627
  Serious: Yes (Death, Hospitalization)
  Sender: FDA-Public Use
  Company Number: US-009507513-1210USA002706

PATIENT
  Age: 58 Year
  Sex: Female
  Weight: 65.4 kg

DRUGS (4)
  1. VORINOSTAT [Suspect]
     Indication: HEAD AND NECK CANCER
     Dosage: 300 mg on days 1-14
     Route: 048
     Dates: start: 20120821
  2. VORINOSTAT [Suspect]
     Dosage: 300 mg on days 1-14
     Route: 048
     Dates: start: 20120910
  3. CAPECITABINE [Suspect]
     Indication: HEAD AND NECK CANCER
     Dosage: 1000 mg/m2 bid on days 1-14
     Dates: start: 20120821
  4. CAPECITABINE [Suspect]
     Dosage: 1000 mg/m2 bid on days 1-14
     Dates: start: 20120910

REACTIONS (1)
  - Respiratory failure [Fatal]
